FAERS Safety Report 9331189 (Version 4)
Quarter: 2014Q1

REPORT INFORMATION
  Report Type: Spontaneous
  Country: CN (occurrence: CN)
  Receive Date: 20130605
  Receipt Date: 20140331
  Transmission Date: 20141002
  Serious: Yes (Hospitalization, Other)
  Sender: FDA-Public Use
  Company Number: CN-BAYER-2013-061685

PATIENT
  Age: 37 Year
  Sex: Female

DRUGS (2)
  1. MIRENA [Suspect]
     Indication: CONTRACEPTION
     Dosage: 20 MCG/24HR, CONT
     Route: 015
     Dates: start: 20120804, end: 20130305
  2. MIRENA [Suspect]
     Indication: ADENOMYOSIS
     Dosage: 20 MCG/24HR, CONT
     Route: 015
     Dates: start: 20130305

REACTIONS (21)
  - Pregnancy with contraceptive device [None]
  - Post abortion haemorrhage [None]
  - Pelvic inflammatory disease [Recovered/Resolved]
  - Inguinal hernia [Recovered/Resolved]
  - Off label use [None]
  - Drug ineffective [None]
  - Abdominal distension [None]
  - Blood albumin decreased [None]
  - Pyrexia [Recovered/Resolved]
  - General physical health deterioration [None]
  - Oedema [None]
  - Weight increased [None]
  - Anaemia [None]
  - Haemoglobin decreased [None]
  - Abdominal pain [Recovering/Resolving]
  - Body temperature increased [None]
  - Hyperhidrosis [None]
  - Interstitial lung disease [None]
  - Menorrhagia [Recovering/Resolving]
  - Menorrhagia [Recovering/Resolving]
  - Device expulsion [None]
